FAERS Safety Report 8250003-4 (Version None)
Quarter: 2012Q2

REPORT INFORMATION
  Report Type: 
  Country: None (occurrence: None)
  Receive Date: 20120402
  Receipt Date: 20120321
  Transmission Date: 20120825
  Serious: Yes (Death, Other)
  Sender: FDA-Public Use
  Company Number: JP-NOVOPROD-348125

PATIENT
  Age: 90 Year
  Sex: Female
  Weight: 43 kg

DRUGS (2)
  1. NOVOSEVEN [Suspect]
     Indication: ACQUIRED HAEMOPHILIA
     Dosage: 5 MG, QD
     Route: 042
     Dates: start: 20120316, end: 20120316
  2. FRESH FROZEN PLASMA [Concomitant]
     Dosage: UNK
     Dates: start: 20120316

REACTIONS (2)
  - DEATH [None]
  - DRUG INEFFECTIVE [None]
